FAERS Safety Report 25850847 (Version 1)
Quarter: 2025Q3

REPORT INFORMATION
  Report Type: Spontaneous
  Country: US (occurrence: US)
  Receive Date: 20250926
  Receipt Date: 20250926
  Transmission Date: 20251020
  Serious: Yes (Other)
  Sender: STRIDES
  Company Number: US-STRIDES ARCOLAB LIMITED-2025SP012183

PATIENT
  Age: 6 Decade
  Sex: Male

DRUGS (13)
  1. MONTELUKAST [Suspect]
     Active Substance: MONTELUKAST
     Indication: Hypereosinophilic syndrome
     Route: 065
  2. MONTELUKAST [Suspect]
     Active Substance: MONTELUKAST
     Indication: NSAID exacerbated respiratory disease
  3. PREDNISONE [Suspect]
     Active Substance: PREDNISONE
     Indication: Toxocariasis
     Route: 065
  4. ALBENDAZOLE [Suspect]
     Active Substance: ALBENDAZOLE
     Indication: Toxocariasis
     Route: 065
  5. FORMOTEROL\MOMETASONE [Suspect]
     Active Substance: FORMOTEROL\MOMETASONE
     Indication: Hypereosinophilic syndrome
     Route: 065
  6. FORMOTEROL\MOMETASONE [Suspect]
     Active Substance: FORMOTEROL\MOMETASONE
     Indication: NSAID exacerbated respiratory disease
  7. BUDESONIDE [Suspect]
     Active Substance: BUDESONIDE
     Indication: Hypereosinophilic syndrome
     Route: 045
  8. BUDESONIDE [Suspect]
     Active Substance: BUDESONIDE
     Indication: NSAID exacerbated respiratory disease
  9. DUPILUMAB [Suspect]
     Active Substance: DUPILUMAB
     Indication: Hypereosinophilic syndrome
     Route: 065
  10. DUPILUMAB [Suspect]
     Active Substance: DUPILUMAB
     Indication: NSAID exacerbated respiratory disease
  11. MEPOLIZUMAB [Concomitant]
     Active Substance: MEPOLIZUMAB
     Indication: Hypereosinophilic syndrome
     Route: 065
  12. MEPOLIZUMAB [Concomitant]
     Active Substance: MEPOLIZUMAB
     Indication: NSAID exacerbated respiratory disease
  13. ASPIRIN [Concomitant]
     Active Substance: ASPIRIN
     Indication: Product used for unknown indication
     Route: 065

REACTIONS (3)
  - Disease recurrence [Recovering/Resolving]
  - Treatment failure [Unknown]
  - Off label use [Unknown]
